FAERS Safety Report 9916809 (Version 1)
Quarter: 2014Q1

REPORT INFORMATION
  Report Type: Spontaneous
  Country: US (occurrence: US)
  Receive Date: 20140221
  Receipt Date: 20140221
  Transmission Date: 20141002
  Serious: Yes (Death, Hospitalization, Other)
  Sender: FDA-Public Use
  Company Number: US-ELI_LILLY_AND_COMPANY-US201402005344

PATIENT
  Age: 28 Year
  Sex: Male

DRUGS (7)
  1. FLUOXETINE HYDROCHLORIDE [Suspect]
     Indication: PRODUCT USED FOR UNKNOWN INDICATION
     Dosage: 10 MG, UNKNOWN
     Route: 065
  2. FLECAINIDE [Suspect]
     Indication: PRODUCT USED FOR UNKNOWN INDICATION
     Dosage: 100 MG, UNKNOWN
     Route: 065
  3. CLONIDINE [Suspect]
     Indication: PRODUCT USED FOR UNKNOWN INDICATION
     Dosage: 0.1 MG, UNKNOWN
     Route: 065
  4. CLONAZEPAM [Suspect]
     Indication: PRODUCT USED FOR UNKNOWN INDICATION
     Dosage: 0.5 MG, UNKNOWN
     Route: 065
  5. LISINOPRIL [Suspect]
     Indication: PRODUCT USED FOR UNKNOWN INDICATION
     Dosage: 40 MG, UNKNOWN
     Route: 065
  6. FUROSEMIDE [Suspect]
     Indication: PRODUCT USED FOR UNKNOWN INDICATION
     Dosage: 20 MG, UNKNOWN
     Route: 065
  7. POTASSIUM CHLORIDE [Suspect]
     Indication: PRODUCT USED FOR UNKNOWN INDICATION
     Dosage: 10 MG, UNKNOWN
     Route: 065

REACTIONS (10)
  - Toxicity to various agents [Fatal]
  - Completed suicide [Fatal]
  - Brain death [Fatal]
  - Cardiac arrest [Unknown]
  - Coma [Unknown]
  - Status epilepticus [Unknown]
  - Decerebrate posture [Unknown]
  - Cardiogenic shock [Unknown]
  - Arrhythmia [Unknown]
  - Compartment syndrome [Unknown]
